FAERS Safety Report 7159082-9 (Version None)
Quarter: 2010Q4

REPORT INFORMATION
  Report Type: 
  Country: None (occurrence: None)
  Receive Date: 20101214
  Receipt Date: 20101208
  Transmission Date: 20110411
  Serious: Yes (Hospitalization)
  Sender: FDA-Public Use
  Company Number: CHPA2010US18593

PATIENT
  Sex: Female

DRUGS (1)
  1. PRIVATE LABEL (NCH) [Suspect]
     Indication: SMOKING CESSATION THERAPY
     Dosage: 14 MG, QD
     Route: 062

REACTIONS (4)
  - ABNORMAL DREAMS [None]
  - INSOMNIA [None]
  - SUICIDAL IDEATION [None]
  - SUICIDE ATTEMPT [None]
